FAERS Safety Report 10160205 (Version 1)
Quarter: 2014Q2

REPORT INFORMATION
  Report Type: Spontaneous
  Country: US (occurrence: US)
  Receive Date: 20140508
  Receipt Date: 20140508
  Transmission Date: 20141212
  Serious: Yes (Other)
  Sender: FDA-Public Use
  Company Number: US-TEVA-480137USA

PATIENT
  Age: 78 Year
  Sex: Female
  Weight: 81.72 kg

DRUGS (9)
  1. TREANDA [Suspect]
     Indication: NON-HODGKIN^S LYMPHOMA
     Dosage: 4 ROUNDS OF TREATMENT THUSFAR
  2. NEULASTA [Concomitant]
  3. RITUXIMAB [Concomitant]
     Indication: NON-HODGKIN^S LYMPHOMA
  4. DIPHENHYDRAMINE [Concomitant]
     Route: 042
  5. ALLOPURINOL [Concomitant]
     Dosage: 300 MILLIGRAM DAILY;
  6. MAGNESIUM OXIDE [Concomitant]
     Indication: BLOOD MAGNESIUM DECREASED
  7. WARFARIN [Concomitant]
     Dosage: 5 MILLIGRAM DAILY;
  8. DIGOXIN [Concomitant]
     Indication: CARDIAC FIBRILLATION
     Dosage: .125 MILLIGRAM DAILY;
  9. VALACYCLOVIR [Concomitant]
     Dosage: 500 MILLIGRAM DAILY;

REACTIONS (7)
  - Atrial fibrillation [Not Recovered/Not Resolved]
  - Blister [Not Recovered/Not Resolved]
  - Pruritus [Not Recovered/Not Resolved]
  - Diarrhoea [Recovered/Resolved]
  - Rash [Not Recovered/Not Resolved]
  - Gait disturbance [Not Recovered/Not Resolved]
  - Pain in extremity [Not Recovered/Not Resolved]
